FAERS Safety Report 5834202-4 (Version None)
Quarter: 2008Q3

REPORT INFORMATION
  Report Type: 
  Country: None (occurrence: None)
  Receive Date: 20080805
  Receipt Date: 20080707
  Transmission Date: 20090109
  Serious: No
  Sender: FDA-Public Use
  Company Number: US-BAYER-200812985BCC

PATIENT
  Age: 77 Year
  Sex: Male
  Weight: 75 kg

DRUGS (4)
  1. ALEVE (CAPLET) [Suspect]
     Indication: MUSCULOSKELETAL PAIN
     Dosage: TOTAL DAILY DOSE: 440 MG  UNIT DOSE: 220 MG
     Route: 048
     Dates: start: 20080706, end: 20080706
  2. ALEVE (CAPLET) [Suspect]
     Dosage: TOTAL DAILY DOSE: 220 MG  UNIT DOSE: 220 MG
     Route: 048
     Dates: start: 20080707
  3. LIPITOR [Concomitant]
  4. FISH OIL [Concomitant]

REACTIONS (1)
  - ARTHRALGIA [None]
